FAERS Safety Report 9912957 (Version 2)
Quarter: 2014Q1

REPORT INFORMATION
  Report Type: Spontaneous
  Country: US (occurrence: US)
  Receive Date: 20140220
  Receipt Date: 20140305
  Transmission Date: 20141002
  Serious: No
  Sender: FDA-Public Use
  Company Number: US-JNJFOC-20140204147

PATIENT
  Age: 68 Year
  Sex: Female
  Weight: 88.45 kg

DRUGS (11)
  1. FENTANYL TRANDERMAL SYSTEM [Suspect]
     Indication: RHEUMATOID ARTHRITIS
     Route: 062
     Dates: start: 20140205
  2. HUMIRA [Concomitant]
     Indication: RHEUMATOID ARTHRITIS
     Route: 058
  3. METHOTREXATE [Concomitant]
     Indication: RHEUMATOID ARTHRITIS
     Route: 058
     Dates: start: 2008
  4. ULTRAM [Concomitant]
     Indication: PAIN
     Route: 065
  5. PRILOSEC [Concomitant]
     Route: 048
  6. DIOVAN [Concomitant]
     Route: 048
  7. ESTRADIOL [Concomitant]
     Route: 048
  8. AMBIEN [Concomitant]
     Route: 048
  9. CYMBALTA [Concomitant]
     Route: 048
  10. SYNTHROID [Concomitant]
     Route: 048
  11. FOLIC ACID [Concomitant]
     Route: 048

REACTIONS (4)
  - Product quality issue [Unknown]
  - Pain in extremity [Not Recovered/Not Resolved]
  - Wrong technique in drug usage process [Unknown]
  - Expired drug administered [Not Recovered/Not Resolved]
